FAERS Safety Report 7512238-5 (Version None)
Quarter: 2011Q2

REPORT INFORMATION
  Report Type: 
  Country: None (occurrence: None)
  Receive Date: 20110520
  Receipt Date: 20110510
  Transmission Date: 20111010
  Serious: Yes (Other)
  Sender: FDA-Public Use
  Company Number: 919947

PATIENT
  Age: 23 Year
  Sex: Female

DRUGS (3)
  1. THIOPENTAL SODIUM [Suspect]
     Dosage: 2.8 MG/KG/H, INTRAVENOS DRIP
     Route: 041
  2. MIDAZOLAM HCL [Concomitant]
  3. PROPOFOL [Concomitant]

REACTIONS (2)
  - HYPOTENSION [None]
  - HYPERKALAEMIA [None]
